FAERS Safety Report 12795955 (Version 1)
Quarter: 2016Q3

REPORT INFORMATION
  Report Type: Spontaneous
  Country: RO (occurrence: RO)
  Receive Date: 20160929
  Receipt Date: 20160929
  Transmission Date: 20161109
  Serious: Yes (Life-Threatening, Hospitalization, Other)
  Sender: FDA-Public Use
  Company Number: RO-KADMON PHARMACEUTICALS, LLC-KAD201609-003511

PATIENT
  Age: 62 Year
  Sex: Female
  Weight: 54 kg

DRUGS (11)
  1. VIEKIRAX [Suspect]
     Active Substance: OMBITASVIR\PARITAPREVIR\RITONAVIR
     Indication: HEPATITIS C
     Dosage: FILM-COATED TABLET
     Route: 048
     Dates: start: 20160719, end: 20160819
  2. VIEKIRAX [Suspect]
     Active Substance: OMBITASVIR\PARITAPREVIR\RITONAVIR
     Indication: HEPATIC CIRRHOSIS
  3. ANXIAR [Concomitant]
     Indication: MAJOR DEPRESSION
  4. SEROQUEL [Concomitant]
     Active Substance: QUETIAPINE FUMARATE
     Indication: MAJOR DEPRESSION
  5. RIBAVIRIN 200 MG [Suspect]
     Active Substance: RIBAVIRIN
     Indication: HEPATIC CIRRHOSIS
  6. EXVIERA [Suspect]
     Active Substance: DASABUVIR
     Indication: HEPATITIS C
     Dosage: FILM-COATED TABLET
     Route: 048
     Dates: start: 20160719, end: 20160819
  7. DORMICUM [Concomitant]
     Active Substance: MIDAZOLAM\MIDAZOLAM HYDROCHLORIDE
     Indication: MAJOR DEPRESSION
  8. SERLIFT [Concomitant]
     Active Substance: SERTRALINE HYDROCHLORIDE
     Indication: MAJOR DEPRESSION
  9. RIBAVIRIN 200 MG [Suspect]
     Active Substance: RIBAVIRIN
     Indication: HEPATITIS C
     Dosage: FILM-COATED TABLET
     Route: 048
     Dates: start: 20160719, end: 20160819
  10. EXVIERA [Suspect]
     Active Substance: DASABUVIR
     Indication: HEPATIC CIRRHOSIS
  11. DEPAKENE [Concomitant]
     Active Substance: VALPROIC ACID
     Indication: MAJOR DEPRESSION

REACTIONS (21)
  - Polyneuropathy [Recovered/Resolved]
  - Coma [Recovered/Resolved]
  - Tricuspid valve incompetence [Unknown]
  - Dizziness [Unknown]
  - Vomiting [Unknown]
  - Depression [Unknown]
  - Hepatocellular injury [Unknown]
  - Urinary tract infection [Unknown]
  - Electrolyte imbalance [Unknown]
  - Hypokinesia [Unknown]
  - Photophobia [Unknown]
  - Bradycardia [Unknown]
  - Radiculopathy [Unknown]
  - Weight decreased [Unknown]
  - Pneumonia escherichia [Unknown]
  - Mitral valve incompetence [Unknown]
  - Hypophagia [Unknown]
  - Asthenia [Unknown]
  - Headache [Unknown]
  - Quadriparesis [Unknown]
  - Meningeal disorder [Unknown]

NARRATIVE: CASE EVENT DATE: 20160810
